FAERS Safety Report 5995356-2 (Version None)
Quarter: 2008Q4

REPORT INFORMATION
  Report Type: 
  Country: None (occurrence: None)
  Receive Date: 20081212
  Receipt Date: 20080922
  Transmission Date: 20090506
  Serious: No
  Sender: FDA-Public Use
  Company Number: US-ABBOTT-08P-163-0477620-00

PATIENT
  Sex: Female

DRUGS (1)
  1. HUMIRA [Suspect]
     Indication: RHEUMATOID ARTHRITIS
     Route: 058
     Dates: start: 20030101, end: 20080601

REACTIONS (9)
  - ANOREXIA [None]
  - ASTHMA [None]
  - CONFUSIONAL STATE [None]
  - COUGH [None]
  - DERMATITIS [None]
  - FATIGUE [None]
  - IRITIS [None]
  - JOINT SWELLING [None]
  - WEIGHT DECREASED [None]
